FAERS Safety Report 6489861-2 (Version None)
Quarter: 2009Q4

REPORT INFORMATION
  Report Type: 
  Country: None (occurrence: None)
  Receive Date: 20091211
  Receipt Date: 20091204
  Transmission Date: 20100525
  Serious: Yes (Hospitalization)
  Sender: FDA-Public Use
  Company Number: CH-ELI_LILLY_AND_COMPANY-CH200911005203

PATIENT
  Age: 68 Year
  Sex: Male
  Weight: 75 kg

DRUGS (8)
  1. HUMALOG [Suspect]
     Indication: TYPE 1 DIABETES MELLITUS
     Dosage: 13.2 IU, DAILY (1/D)
     Route: 058
     Dates: end: 20091106
  2. HUMALOG [Suspect]
     Dosage: 13.2 IU, DAILY (1/D)
     Route: 058
     Dates: start: 20091107, end: 20091109
  3. HUMALOG [Suspect]
     Dosage: UNK IU, UNK
     Route: 058
     Dates: start: 20091110, end: 20091110
  4. HUMALOG [Suspect]
     Route: 058
     Dates: start: 20091114
  5. DEROXAT [Concomitant]
     Indication: CLAUSTROPHOBIA
     Dosage: 20 MG, DAILY (1/D)
     Route: 048
  6. COVERSUM [Concomitant]
     Dosage: 5 MG, DAILY (1/D)
     Route: 048
  7. OMEPRAZOLE [Concomitant]
     Indication: GASTROOESOPHAGEAL REFLUX DISEASE
     Dosage: 40 MG, DAILY (1/D)
     Route: 048
  8. ASPIRIN [Concomitant]
     Dosage: UNK, OTHER

REACTIONS (2)
  - INFLAMMATION [None]
  - KETOACIDOSIS [None]
